FAERS Safety Report 7357647-2 (Version None)
Quarter: 2011Q1

REPORT INFORMATION
  Report Type: 
  Country: None (occurrence: None)
  Receive Date: 20110317
  Receipt Date: 20110310
  Transmission Date: 20110831
  Serious: Yes (Other)
  Sender: FDA-Public Use
  Company Number: US-ELI_LILLY_AND_COMPANY-US201011001483

PATIENT
  Age: 83 Year
  Sex: Male

DRUGS (14)
  1. FORTEO [Suspect]
  2. FORTEO [Suspect]
  3. FORTEO [Suspect]
  4. FORTEO [Suspect]
  5. FORTEO [Suspect]
  6. FORTEO [Suspect]
  7. FORTEO [Suspect]
  8. FORTEO [Suspect]
  9. FORTEO [Suspect]
  10. COREG [Concomitant]
  11. FORTEO [Suspect]
     Indication: OSTEOPOROSIS
     Dosage: 20 UG, DAILY (1/D)
     Route: 065
     Dates: start: 20091026
  12. FORTEO [Suspect]
  13. FORTEO [Suspect]
  14. FORTEO [Suspect]

REACTIONS (2)
  - PROSTATE CANCER METASTATIC [None]
  - PROSTATIC SPECIFIC ANTIGEN INCREASED [None]
